FAERS Safety Report 16805404 (Version 1)
Quarter: 2019Q3

REPORT INFORMATION
  Report Type: Spontaneous
  Country: US (occurrence: US)
  Receive Date: 20190913
  Receipt Date: 20190913
  Transmission Date: 20191005
  Serious: No
  Sender: FDA-Public Use
  Company Number: US-AMAG PHARMACEUTICALS, INC.-AMAG201904637

PATIENT
  Sex: Female
  Weight: 59.02 kg

DRUGS (4)
  1. BIEST [Concomitant]
     Active Substance: ESTRADIOL\ESTRIOL
     Indication: VULVOVAGINAL DRYNESS
     Dosage: 2 CLICKS AT NIGHT AND 1 CLICK IN AM
     Route: 061
  2. HORMONES [Concomitant]
     Active Substance: UNSPECIFIED INGREDIENT
     Indication: VULVOVAGINAL DRYNESS
     Dosage: 0.2ML /4 DROP
     Route: 060
  3. TESTOSTERONE. [Concomitant]
     Active Substance: TESTOSTERONE
     Indication: VULVOVAGINAL DRYNESS
     Route: 061
  4. INTRAROSA [Suspect]
     Active Substance: PRASTERONE
     Indication: DYSPAREUNIA
     Route: 067
     Dates: start: 2019

REACTIONS (1)
  - Vaginal discharge [Not Recovered/Not Resolved]
